FAERS Safety Report 6827594-0 (Version None)
Quarter: 2010Q3

REPORT INFORMATION
  Report Type: 
  Country: None (occurrence: None)
  Receive Date: 20100709
  Receipt Date: 20070914
  Transmission Date: 20110219
  Serious: No
  Sender: FDA-Public Use
  Company Number: US-PFIZER INC-2007006017

PATIENT
  Sex: Female
  Weight: 78.47 kg

DRUGS (3)
  1. CHANTIX [Suspect]
     Indication: SMOKING CESSATION THERAPY
     Dates: start: 20070111
  2. LIPITOR [Concomitant]
  3. WARFARIN [Concomitant]
     Indication: ABNORMAL CLOTTING FACTOR

REACTIONS (4)
  - ASTHENIA [None]
  - FATIGUE [None]
  - HANGOVER [None]
  - INSOMNIA [None]
